FAERS Safety Report 5703318-5 (Version None)
Quarter: 2008Q2

REPORT INFORMATION
  Report Type: 
  Country: None (occurrence: None)
  Receive Date: 20080411
  Receipt Date: 20080401
  Transmission Date: 20081010
  Serious: Yes (Other)
  Sender: FDA-Public Use
  Company Number: US-PFIZER INC-2008023621

PATIENT
  Sex: Female
  Weight: 52.2 kg

DRUGS (2)
  1. CHANTIX [Suspect]
     Indication: SMOKING CESSATION THERAPY
     Dates: start: 20080213, end: 20080301
  2. PREMARIN [Concomitant]

REACTIONS (5)
  - DEPRESSION [None]
  - NAUSEA [None]
  - NERVOUSNESS [None]
  - THINKING ABNORMAL [None]
  - VOMITING [None]
